FAERS Safety Report 24793914 (Version 1)
Quarter: 2024Q4

REPORT INFORMATION
  Report Type: Spontaneous
  Country: US (occurrence: US)
  Receive Date: 20241231
  Receipt Date: 20241231
  Transmission Date: 20250114
  Serious: No
  Sender: MERCK
  Company Number: US-009507513-2412USA000702

PATIENT
  Age: 57 Year
  Sex: Female
  Weight: 92.6 kg

DRUGS (2)
  1. KEYTRUDA [Suspect]
     Active Substance: PEMBROLIZUMAB
     Indication: Endometrial cancer
     Dosage: UNK
  2. LENVATINIB MESYLATE [Suspect]
     Active Substance: LENVATINIB MESYLATE
     Indication: Endometrial cancer
     Dosage: TAKE 1 (10 MG) WITH 1 (4 MG), TOTAL DAILY DOSE 14 MG, ONCE DAILY (QD)
     Route: 048

REACTIONS (6)
  - Thyroid hormones increased [Unknown]
  - Thyroid hormones decreased [Unknown]
  - Protein total decreased [Unknown]
  - Muscular weakness [Unknown]
  - Myalgia [Unknown]
  - Product use issue [Unknown]
